FAERS Safety Report 23639136 (Version 2)
Quarter: 2025Q3

REPORT INFORMATION
  Report Type: Report from Study
  Country: CA (occurrence: CA)
  Receive Date: 20240315
  Receipt Date: 20250827
  Transmission Date: 20251021
  Serious: Yes (Disabling)
  Sender: HLS THERAPEUTICS
  Company Number: CA-HLS-202400444

PATIENT
  Age: 37 Year
  Sex: Male

DRUGS (3)
  1. CLOZARIL [Suspect]
     Active Substance: CLOZAPINE
     Indication: Schizophrenia
     Route: 048
     Dates: start: 20241206, end: 20250715
  2. CLOZARIL [Suspect]
     Active Substance: CLOZAPINE
     Indication: Schizophrenia
     Route: 048
     Dates: start: 20201105, end: 20240210
  3. LURASIDONE [Concomitant]
     Active Substance: LURASIDONE
     Indication: Schizophrenia
     Route: 048
     Dates: start: 2023, end: 202402

REACTIONS (4)
  - Drug ineffective [Unknown]
  - Homicidal ideation [Recovering/Resolving]
  - Sedation [Recovered/Resolved]
  - Adverse drug reaction [Unknown]
